FAERS Safety Report 14816544 (Version 1)
Quarter: 2018Q2

REPORT INFORMATION
  Report Type: Spontaneous
  Country: BR (occurrence: BR)
  Receive Date: 20180426
  Receipt Date: 20180426
  Transmission Date: 20180711
  Serious: Yes (Other)
  Sender: FDA-Public Use
  Company Number: PHHY2018BR072873

PATIENT
  Sex: Female
  Weight: 65 kg

DRUGS (1)
  1. CATAFLAM [Suspect]
     Active Substance: DICLOFENAC POTASSIUM
     Indication: TOOTHACHE
     Route: 065

REACTIONS (2)
  - Blood pressure increased [Unknown]
  - Toothache [Unknown]
